FAERS Safety Report 25078408 (Version 2)
Quarter: 2025Q2

REPORT INFORMATION
  Report Type: Spontaneous
  Country: JP (occurrence: JP)
  Receive Date: 20250314
  Receipt Date: 20250403
  Transmission Date: 20250717
  Serious: Yes (Death, Other)
  Sender: BRACCO
  Company Number: JP-BRACCO-2025JP01243

PATIENT
  Age: 64 Year
  Sex: Male

DRUGS (13)
  1. IOMERON [Suspect]
     Active Substance: IOMEPROL
     Indication: Computerised tomogram heart
     Route: 040
     Dates: start: 20250226, end: 20250226
  2. AMLODIPINE [Concomitant]
     Active Substance: AMLODIPINE BESYLATE
     Indication: Hypertension
     Route: 048
     Dates: start: 20230201, end: 20250226
  3. Bevacizumab bs [Concomitant]
     Indication: Rectal cancer
     Route: 042
     Dates: start: 20250219, end: 20250219
  4. CARVEDILOL [Concomitant]
     Active Substance: CARVEDILOL
     Indication: Hypertension
     Route: 048
     Dates: start: 20250219, end: 20250226
  5. CARVEDILOL [Concomitant]
     Active Substance: CARVEDILOL
     Indication: Tachycardia
  6. LANDIOLOL HYDROCHLORIDE [Concomitant]
     Active Substance: LANDIOLOL HYDROCHLORIDE
     Dates: start: 20250226, end: 20250226
  7. HERBALS [Concomitant]
     Active Substance: HERBALS
     Indication: Constipation
     Route: 048
     Dates: start: 20230201, end: 20250226
  8. LONSURF [Concomitant]
     Active Substance: TIPIRACIL HYDROCHLORIDE\TRIFLURIDINE
     Indication: Rectal cancer
  9. MAGNESIUM OXIDE [Concomitant]
     Active Substance: MAGNESIUM OXIDE
     Indication: Constipation
     Route: 048
     Dates: start: 20230201, end: 20250226
  10. METOCLOPRAMIDE [Concomitant]
     Active Substance: METOCLOPRAMIDE
     Indication: Nausea
  11. MINOCYCLINE HYDROCHLORIDE [Concomitant]
     Active Substance: MINOCYCLINE HYDROCHLORIDE
     Indication: Rash
     Route: 048
     Dates: start: 20230201, end: 20250226
  12. ROSUVASTATIN [Concomitant]
     Active Substance: ROSUVASTATIN
     Indication: Hypercholesterolaemia
     Route: 048
     Dates: start: 20250219, end: 20250226
  13. VONOPRAZAN FUMARATE [Concomitant]
     Active Substance: VONOPRAZAN FUMARATE
     Indication: Gastrooesophageal reflux disease
     Route: 048
     Dates: start: 20230201, end: 20250226

REACTIONS (3)
  - Contrast media allergy [Fatal]
  - Cardiac arrest [Fatal]
  - Acute myocardial infarction [Fatal]

NARRATIVE: CASE EVENT DATE: 20250226
